FAERS Safety Report 9290020 (Version 1)
Quarter: 2013Q2

REPORT INFORMATION
  Report Type: Spontaneous
  Country: CN (occurrence: None)
  Receive Date: 20130510
  Receipt Date: 20130510
  Transmission Date: 20140414
  Serious: Yes (Hospitalization)
  Sender: FDA-Public Use
  Company Number: SYM-2013-03592

PATIENT
  Age: 51 Year
  Sex: 0

DRUGS (13)
  1. FLUOROURACIL [Suspect]
     Indication: COLORECTAL CANCER METASTATIC
     Dosage: EVERY OTHER WEEK
     Route: 040
  2. AFLIBERCEPT [Suspect]
     Indication: COLORECTAL CANCER METASTATIC
     Dosage: EVERY OTHER WEEK
     Route: 042
  3. IRINOTECAN [Suspect]
     Indication: COLORECTAL CANCER METASTATIC
     Dosage: EVERY OTHER WEEK
     Route: 042
  4. LEUCOVORIN [Suspect]
     Indication: COLORECTAL CANCER METASTATIC
     Dosage: EVERY OTHER WEEK
     Route: 042
  5. FLUOROURACIL (FLUOROURACIL) (FLUOROURACIL) [Concomitant]
  6. BISOPROLOL (BISOPROLOL) (BISOPROLOL)? [Concomitant]
  7. AMLODIPINE (AMLODIPINE) (AMLODIPINE) [Concomitant]
  8. PROMETHAZINE (PROMETHAZINE) (PROMETHAZINE) [Concomitant]
  9. OMEPRAZOLE (OMEPRAZOLE) (OMEPRAZOLE) [Concomitant]
  10. DEXAMETHASONE (DEXAMETHASONE) (DEXAMETHASONE) [Concomitant]
  11. PALONOSETRON (PALONOSETRON) (PALONOSETRON) [Concomitant]
  12. OXALIPLATIN (OXALIPLATIN) (OXALIPLATIN) [Concomitant]
  13. FOLINIC ACID [Suspect]

REACTIONS (1)
  - Hepatitis B [None]
